FAERS Safety Report 6045643-7 (Version None)
Quarter: 2009Q1

REPORT INFORMATION
  Report Type: 
  Country: None (occurrence: None)
  Receive Date: 20090121
  Receipt Date: 20090112
  Transmission Date: 20090719
  Serious: Yes (Other)
  Sender: FDA-Public Use
  Company Number: US-ALLERGAN-0900489US

PATIENT
  Sex: Female

DRUGS (2)
  1. OPHTHETIC [Suspect]
     Indication: OCULAR HYPERAEMIA
     Route: 047
     Dates: start: 20071001
  2. OPHTHETIC [Suspect]
     Indication: EYE PAIN

REACTIONS (4)
  - ACANTHAMOEBA INFECTION [None]
  - CORNEAL EPITHELIUM DEFECT [None]
  - CORNEAL INFILTRATES [None]
  - KERATITIS [None]
